FAERS Safety Report 11443337 (Version 2)
Quarter: 2015Q4

REPORT INFORMATION
  Report Type: Report from Study
  Country: JP (occurrence: JP)
  Receive Date: 20150901
  Receipt Date: 20151009
  Transmission Date: 20160304
  Serious: Yes (Other)
  Sender: FDA-Public Use
  Company Number: JP-009507513-1509JPN000482

PATIENT
  Sex: Female

DRUGS (6)
  1. DIAZOXIDE [Suspect]
     Active Substance: DIAZOXIDE
     Dosage: 7 MG, TID
     Route: 048
     Dates: start: 20140504, end: 20140513
  2. DIAZOXIDE [Suspect]
     Active Substance: DIAZOXIDE
     Dosage: 4.5 MG, TID
     Route: 048
     Dates: start: 20140514, end: 20140520
  3. DIAZOXIDE [Suspect]
     Active Substance: DIAZOXIDE
     Dosage: 2.5 MG, TID
     Route: 048
     Dates: start: 20140521, end: 20140527
  4. GLUCAGON. [Concomitant]
     Active Substance: GLUCAGON
     Dosage: 1.2 (UNDER 1000 UNIT), QD. DIVIDED DOSE FREQUENCY UNKNOWN
     Route: 042
     Dates: start: 201405, end: 20140504
  5. DIAZOXIDE [Suspect]
     Active Substance: DIAZOXIDE
     Indication: HYPOGLYCAEMIA
     Dosage: 4.5 MG, TID
     Route: 048
     Dates: start: 20140502, end: 20140503
  6. GLUCAGON. [Concomitant]
     Active Substance: GLUCAGON
     Indication: HYPOGLYCAEMIA
     Dosage: 1.2 (UNDER 1000 UNIT), QD. DIVIDED DOSE FREQUENCY UNKNOWN
     Route: 042
     Dates: start: 20140502, end: 20140502

REACTIONS (2)
  - Patent ductus arteriosus [Recovered/Resolved]
  - Neonatal infection [Recovered/Resolved]

NARRATIVE: CASE EVENT DATE: 20140505
